FAERS Safety Report 25648856 (Version 1)
Quarter: 2025Q3

REPORT INFORMATION
  Report Type: Spontaneous
  Country: EU (occurrence: EU)
  Receive Date: 20250806
  Receipt Date: 20250806
  Transmission Date: 20251021
  Serious: Yes (Hospitalization)
  Sender: MYLAN
  Company Number: EU-MYLANLABS-2025M1066243

PATIENT
  Age: 26 Year
  Sex: Female

DRUGS (28)
  1. DIAZEPAM [Suspect]
     Active Substance: DIAZEPAM
     Indication: Status epilepticus
  2. DIAZEPAM [Suspect]
     Active Substance: DIAZEPAM
     Route: 065
  3. DIAZEPAM [Suspect]
     Active Substance: DIAZEPAM
     Route: 065
  4. DIAZEPAM [Suspect]
     Active Substance: DIAZEPAM
  5. LEVETIRACETAM [Suspect]
     Active Substance: LEVETIRACETAM
     Indication: Status epilepticus
  6. LEVETIRACETAM [Suspect]
     Active Substance: LEVETIRACETAM
     Route: 065
  7. LEVETIRACETAM [Suspect]
     Active Substance: LEVETIRACETAM
     Route: 065
  8. LEVETIRACETAM [Suspect]
     Active Substance: LEVETIRACETAM
  9. PHENYTOIN [Suspect]
     Active Substance: PHENYTOIN
     Indication: Status epilepticus
  10. PHENYTOIN [Suspect]
     Active Substance: PHENYTOIN
     Route: 065
  11. PHENYTOIN [Suspect]
     Active Substance: PHENYTOIN
     Route: 065
  12. PHENYTOIN [Suspect]
     Active Substance: PHENYTOIN
  13. LACOSAMIDE [Suspect]
     Active Substance: LACOSAMIDE
     Indication: Status epilepticus
  14. LACOSAMIDE [Suspect]
     Active Substance: LACOSAMIDE
     Route: 065
  15. LACOSAMIDE [Suspect]
     Active Substance: LACOSAMIDE
     Route: 065
  16. LACOSAMIDE [Suspect]
     Active Substance: LACOSAMIDE
  17. VALPROATE [Suspect]
     Active Substance: VALPROIC ACID
     Indication: Status epilepticus
  18. VALPROATE [Suspect]
     Active Substance: VALPROIC ACID
     Route: 065
  19. VALPROATE [Suspect]
     Active Substance: VALPROIC ACID
     Route: 065
  20. VALPROATE [Suspect]
     Active Substance: VALPROIC ACID
  21. MIDAZOLAM [Suspect]
     Active Substance: MIDAZOLAM
     Indication: Status epilepticus
  22. MIDAZOLAM [Suspect]
     Active Substance: MIDAZOLAM
     Route: 065
  23. MIDAZOLAM [Suspect]
     Active Substance: MIDAZOLAM
     Route: 065
  24. MIDAZOLAM [Suspect]
     Active Substance: MIDAZOLAM
  25. CENOBAMATE [Suspect]
     Active Substance: CENOBAMATE
     Indication: Status epilepticus
  26. CENOBAMATE [Suspect]
     Active Substance: CENOBAMATE
     Route: 065
  27. CENOBAMATE [Suspect]
     Active Substance: CENOBAMATE
     Route: 065
  28. CENOBAMATE [Suspect]
     Active Substance: CENOBAMATE

REACTIONS (1)
  - Drug ineffective [Unknown]
